FAERS Safety Report 13068680 (Version 1)
Quarter: 2016Q4

REPORT INFORMATION
  Report Type: Spontaneous
  Country: BR (occurrence: BR)
  Receive Date: 20161228
  Receipt Date: 20161228
  Transmission Date: 20170207
  Serious: Yes (Death)
  Sender: FDA-Public Use
  Company Number: BR-PFIZER INC-2016597694

PATIENT
  Age: 57 Year
  Sex: Male

DRUGS (1)
  1. SUTENT [Suspect]
     Active Substance: SUNITINIB MALATE
     Dosage: UNK
     Dates: start: 201611

REACTIONS (4)
  - Dyspnoea [Unknown]
  - Condition aggravated [Unknown]
  - Mass [Unknown]
  - Death [Fatal]

NARRATIVE: CASE EVENT DATE: 2016
